FAERS Safety Report 8814010 (Version 1)
Quarter: 2012Q4

REPORT INFORMATION
  Report Type: Spontaneous
  Country: US (occurrence: None)
  Receive Date: 20120926
  Receipt Date: 20120926
  Transmission Date: 20130627
  Serious: No
  Sender: FDA-Public Use
  Company Number: None

PATIENT
  Age: 76 Year
  Sex: Male
  Weight: 104.5 kg

DRUGS (1)
  1. DABIGATRAN [Suspect]
     Dosage: 150 MG BID PO
     Route: 048
     Dates: start: 20120203, end: 20120208

REACTIONS (4)
  - Nausea [None]
  - Abdominal pain upper [None]
  - Vomiting [None]
  - Epigastric discomfort [None]
